FAERS Safety Report 17269725 (Version 1)
Quarter: 2020Q1

REPORT INFORMATION
  Report Type: Spontaneous
  Country: TN (occurrence: TN)
  Receive Date: 20200114
  Receipt Date: 20200114
  Transmission Date: 20200409
  Serious: Yes (Other)
  Sender: FDA-Public Use
  Company Number: TN-ALLERGAN-2001741US

PATIENT
  Sex: Male

DRUGS (2)
  1. TRIPTORELIN PAMOATE UNK [Suspect]
     Active Substance: TRIPTORELIN PAMOATE
     Indication: PROSTATE CANCER
  2. CYPROTERONE [Concomitant]
     Active Substance: CYPROTERONE
     Indication: PROSTATE CANCER

REACTIONS (1)
  - Bladder squamous cell carcinoma stage unspecified [Unknown]
